FAERS Safety Report 9029018 (Version 2)
Quarter: 2013Q1

REPORT INFORMATION
  Report Type: Spontaneous
  Country: JP (occurrence: JP)
  Receive Date: 20130122
  Receipt Date: 20130204
  Transmission Date: 20140127
  Serious: Yes (Hospitalization, Other)
  Sender: FDA-Public Use
  Company Number: PHHY2013JP005514

PATIENT
  Age: 87 Year
  Sex: Male
  Weight: 44 kg

DRUGS (14)
  1. TEGRETOL [Suspect]
     Indication: TOOTHACHE
     Dosage: 50 MG, BID
     Route: 048
     Dates: start: 20121001, end: 20121012
  2. TEGRETOL [Suspect]
     Indication: TRIGEMINAL NEURALGIA
     Dosage: 150 MG, BID
     Route: 048
     Dates: start: 20121013, end: 20121026
  3. TEGRETOL [Suspect]
     Dosage: 200 MG, BID
     Dates: start: 20121027, end: 20121029
  4. TEGRETOL [Suspect]
     Dosage: 200 MG, BID
     Dates: start: 20121030, end: 20121113
  5. CALONAL [Concomitant]
     Dosage: 800 MG, UNK
     Route: 048
  6. SODIUM CHLORIDE [Concomitant]
     Dosage: UNK UKN, UNK
     Route: 048
  7. OLMETEC [Concomitant]
     Dosage: 10 MG, UNK
     Route: 048
  8. LENDORMIN [Concomitant]
     Dosage: 0.25 MG, UNK
     Route: 048
  9. ARGAMATE [Concomitant]
     Dosage: 1 UKN, UNK
  10. PARIET [Concomitant]
     Dosage: 20 MG, UNK
     Route: 048
  11. BAKTAR [Concomitant]
     Dosage: 1 UKN, UNK
  12. PREDONINE [Concomitant]
     Dosage: 8 MG, UNK
     Route: 048
  13. PLAVIX [Concomitant]
     Dosage: UNK UKN, UNK
     Route: 048
     Dates: start: 20121016
  14. METHYCOBAL [Concomitant]
     Dosage: 1500 MG, UNK
     Route: 048

REACTIONS (4)
  - Cerebral infarction [Recovered/Resolved]
  - Fall [Recovered/Resolved]
  - Generalised erythema [Recovered/Resolved]
  - Dizziness [Recovered/Resolved]
